FAERS Safety Report 25620686 (Version 4)
Quarter: 2025Q4

REPORT INFORMATION
  Report Type: Spontaneous
  Country: JP (occurrence: JP)
  Receive Date: 20250730
  Receipt Date: 20251014
  Transmission Date: 20260118
  Serious: Yes (Other)
  Sender: MERCK SHARP & DOHME LLC
  Company Number: JP-009507513-2313668

PATIENT
  Age: 94 Year
  Sex: Female

DRUGS (4)
  1. LAGEVRIO [Suspect]
     Active Substance: MOLNUPIRAVIR
     Indication: COVID-19 treatment
     Route: 048
     Dates: start: 20250718, end: 20250722
  2. EPRAZINONE [Concomitant]
     Active Substance: EPRAZINONE
     Dates: start: 20250718
  3. CARBOCYSTEINE [Concomitant]
     Active Substance: CARBOCYSTEINE
     Dates: start: 20250718
  4. CALONAL [Concomitant]
     Active Substance: ACETAMINOPHEN
     Dates: start: 20250718

REACTIONS (2)
  - Delirium [Unknown]
  - Cognitive disorder [Unknown]

NARRATIVE: CASE EVENT DATE: 20250722
